FAERS Safety Report 7294902-9 (Version None)
Quarter: 2011Q1

REPORT INFORMATION
  Report Type: 
  Country: None (occurrence: None)
  Receive Date: 20110216
  Receipt Date: 20110210
  Transmission Date: 20110831
  Serious: Yes (Hospitalization)
  Sender: FDA-Public Use
  Company Number: TR-JNJFOC-20110202860

PATIENT
  Sex: Male
  Weight: 85 kg

DRUGS (2)
  1. DORIPENEM [Suspect]
     Route: 041
  2. DORIPENEM [Suspect]
     Indication: PRODUCT USED FOR UNKNOWN INDICATION
     Route: 041

REACTIONS (3)
  - RENAL FAILURE ACUTE [None]
  - BLOOD UREA INCREASED [None]
  - BLOOD CREATININE INCREASED [None]
